FAERS Safety Report 9331861 (Version 1)
Quarter: 2013Q2

REPORT INFORMATION
  Report Type: Spontaneous
  Country: FR (occurrence: None)
  Receive Date: 20130603
  Receipt Date: 20130603
  Transmission Date: 20140414
  Serious: Yes (Death, Hospitalization)
  Sender: FDA-Public Use
  Company Number: FR-ALKEM-000088

PATIENT
  Age: 76 Year
  Sex: Female

DRUGS (2)
  1. MYCOPHENOLATE MOFETIL [Suspect]
     Indication: PEMPHIGOID
  2. CLOBETASOL PROPIONATE [Suspect]
     Indication: PEMPHIGOID
     Route: 061

REACTIONS (9)
  - Necrotising fasciitis [None]
  - Septic shock [None]
  - Streptococcus test positive [None]
  - Staphylococcus test positive [None]
  - General physical health deterioration [None]
  - Off label use [None]
  - Diabetes mellitus [None]
  - Pemphigoid [None]
  - Disease recurrence [None]
